FAERS Safety Report 4434100-7 (Version None)
Quarter: 2004Q3

REPORT INFORMATION
  Report Type: 
  Country: None (occurrence: None)
  Receive Date: 20040825
  Receipt Date: 20040812
  Transmission Date: 20050211
  Serious: Yes (Hospitalization)
  Sender: FDA-Public Use
  Company Number: 2004055275

PATIENT
  Sex: Male

DRUGS (1)
  1. BENADRYL [Suspect]
     Indication: HYPERSENSITIVITY
     Dosage: ORAL
     Route: 048

REACTIONS (11)
  - CAROTID ARTERY OCCLUSION [None]
  - IMPLANT SITE INFECTION [None]
  - NO REACTION ON PREVIOUS EXPOSURE TO DRUG [None]
  - PAIN [None]
  - PAIN IN EXTREMITY [None]
  - POST PROCEDURAL COMPLICATION [None]
  - PROSTATIC OBSTRUCTION [None]
  - TRANSIENT ISCHAEMIC ATTACK [None]
  - TREMOR [None]
  - URINARY RETENTION [None]
  - VISUAL DISTURBANCE [None]
